FAERS Safety Report 14319073 (Version 2)
Quarter: 2018Q2

REPORT INFORMATION
  Report Type: Spontaneous
  Country: GB (occurrence: GB)
  Receive Date: 20171222
  Receipt Date: 20180626
  Transmission Date: 20180711
  Serious: Yes (Life-Threatening, Hospitalization, Other)
  Sender: FDA-Public Use
  Company Number: GB-SA-2017SA251634

PATIENT
  Age: 18 Year
  Sex: Female
  Weight: 51 kg

DRUGS (14)
  1. ACETYLSALICYLIC ACID [Concomitant]
     Active Substance: ASPIRIN
     Indication: PROPHYLAXIS
     Dosage: 75 MG,QD
     Route: 048
     Dates: start: 20170502
  2. LANTUS [Suspect]
     Active Substance: INSULIN GLARGINE
     Dosage: 15 IU,QD
     Route: 058
     Dates: start: 20170910
  3. LABETALOL [Concomitant]
     Active Substance: LABETALOL\LABETALOL HYDROCHLORIDE
     Indication: BLOOD PRESSURE INCREASED
     Dosage: 100 MG,QD
     Route: 048
     Dates: start: 20170530
  4. LANTUS [Suspect]
     Active Substance: INSULIN GLARGINE
     Indication: TYPE 1 DIABETES MELLITUS
     Dosage: 9 IU,QD
     Route: 058
     Dates: start: 20160823, end: 20170910
  5. NOVORAPID [Suspect]
     Active Substance: INSULIN ASPART
     Indication: TYPE 1 DIABETES MELLITUS
     Dosage: 13 IU,QD
     Route: 058
     Dates: start: 20161213, end: 20170910
  6. NOVORAPID [Suspect]
     Active Substance: INSULIN ASPART
     Dosage: 23 IU,QD
     Route: 058
     Dates: start: 20171011
  7. PREGNACARE [Concomitant]
     Active Substance: MINERALS\VITAMINS
     Indication: PROPHYLAXIS
     Dosage: 1 DF,QD
     Route: 048
     Dates: start: 20170328
  8. CYCLIZINE [Concomitant]
     Active Substance: CYCLIZINE
     Indication: NAUSEA
     Dosage: 50 MG,PRN
     Route: 048
     Dates: start: 20170425
  9. COLECALCIFEROL [Concomitant]
     Active Substance: CHOLECALCIFEROL
     Indication: PROPHYLAXIS
     Dosage: 400 DF,QD
     Route: 048
     Dates: start: 20170328
  10. CEFALEXIN [Concomitant]
     Active Substance: CEPHALEXIN
     Indication: URINARY TRACT INFECTION
     Dosage: 250 MG, QID
     Dates: start: 20170818, end: 20170825
  11. LANTUS [Suspect]
     Active Substance: INSULIN GLARGINE
     Dosage: 11 IU,QD
     Route: 058
     Dates: start: 20171011
  12. NOVORAPID [Suspect]
     Active Substance: INSULIN ASPART
     Dosage: 30 IU,QD
     Route: 058
     Dates: start: 20170910, end: 20170911
  13. FOLIC ACID. [Concomitant]
     Active Substance: FOLIC ACID
     Indication: PROPHYLAXIS
     Dosage: 5 MG,QD
     Route: 048
     Dates: start: 20170328
  14. GALFER [Concomitant]
     Active Substance: IRON
     Indication: ANAEMIA
     Dosage: 305 MG,QD
     Route: 048
     Dates: start: 20170801

REACTIONS (7)
  - Exposure during pregnancy [Unknown]
  - Decreased appetite [Recovered/Resolved]
  - Large for dates baby [Not Recovered/Not Resolved]
  - Blood glucose increased [Recovering/Resolving]
  - Polyhydramnios [Not Recovered/Not Resolved]
  - Hypoglycaemia [Recovered/Resolved]
  - Uterine contractions during pregnancy [Recovered/Resolved]

NARRATIVE: CASE EVENT DATE: 20170208
